FAERS Safety Report 16911533 (Version 1)
Quarter: 2019Q4

REPORT INFORMATION
  Report Type: Spontaneous
  Country: US (occurrence: US)
  Receive Date: 20191013
  Receipt Date: 20191013
  Transmission Date: 20200122
  Serious: No
  Sender: FDA-Public Use
  Company Number: US-C B FLEET CO INC-201812-US-002986

PATIENT
  Sex: Female

DRUGS (1)
  1. MONISTAT 1 COMBINATION PACK TRIPLE ACTION [Suspect]
     Active Substance: MICONAZOLE NITRATE
     Indication: FUNGAL INFECTION
     Dosage: CONSUMER USED PRODUCT X 1 DAY. EACH APPLICATOR IS 1200MG. EXTERNAL CREAM IS 2% UNKNOWN IF CONSUMER U
     Route: 067
     Dates: start: 20181202, end: 20181202

REACTIONS (1)
  - Vaginal haemorrhage [Not Recovered/Not Resolved]
